FAERS Safety Report 7515453-X (Version None)
Quarter: 2011Q2

REPORT INFORMATION
  Report Type: 
  Country: None (occurrence: None)
  Receive Date: 20110601
  Receipt Date: 20110520
  Transmission Date: 20111010
  Serious: Yes (Other)
  Sender: FDA-Public Use
  Company Number: IT-BRISTOL-MYERS SQUIBB COMPANY-15774714

PATIENT
  Age: 80 Year
  Sex: Male

DRUGS (5)
  1. IRBESARTAN + HYDROCHLOROTHIAZIDE [Concomitant]
     Dosage: 1 DF:1 UNIT FORMULATION:KARVEZIDE 300 MG/12.5 MG
     Route: 048
     Dates: start: 20060515, end: 20110220
  2. LANTUS [Concomitant]
     Dosage: 1 DF:100 IU/ML INJECTABLE SOLUTION
     Route: 058
     Dates: start: 20110101, end: 20110220
  3. TORVAST [Concomitant]
     Dosage: FORMULATION:TORVAST 20 MG TABS,
     Route: 048
     Dates: start: 20100514, end: 20110220
  4. HUMALOG [Concomitant]
     Dosage: 1 DF:100 U/ML INJECTABLE SOLUTION
     Route: 058
     Dates: start: 20100901, end: 20110220
  5. COUMADIN [Suspect]
     Indication: PULMONARY EMBOLISM
     Dosage: INTERRUPTED:20FEB11
     Dates: start: 20060515

REACTIONS (2)
  - INTERNATIONAL NORMALISED RATIO INCREASED [None]
  - RENAL FAILURE [None]
